FAERS Safety Report 19895166 (Version 1)
Quarter: 2021Q3

REPORT INFORMATION
  Report Type: Spontaneous
  Country: CN (occurrence: CN)
  Receive Date: 20210928
  Receipt Date: 20210928
  Transmission Date: 20211014
  Serious: Yes (Hospitalization)
  Sender: FDA-Public Use
  Company Number: CN-BAXTER-2021BAX024729

PATIENT
  Age: 60 Year
  Sex: Female
  Weight: 55 kg

DRUGS (8)
  1. ENDOXAN [Suspect]
     Active Substance: CYCLOPHOSPHAMIDE
     Indication: BREAST CANCER
     Dosage: CYCLOPHOSPHAMIDE 900 MG + 0.9% NS 80 ML; DAY 3
     Route: 041
     Dates: start: 20180915, end: 20180915
  2. ENDOXAN [Suspect]
     Active Substance: CYCLOPHOSPHAMIDE
     Dosage: DOSE REINTRODUCED, CYCLOPHOSPHAMIDE + 0.9% NS
     Route: 041
  3. PHARMORUBICIN [Suspect]
     Active Substance: EPIRUBICIN
     Indication: BREAST CANCER
     Dosage: DAY 1 AND 2; EPIRUBICIN 600 MG + WATER FOR INJECTION 80 ML
     Route: 041
     Dates: start: 20180913, end: 20180914
  4. STERILE WATER FOR INJECTION [Suspect]
     Active Substance: WATER
     Indication: MEDICATION DILUTION
     Dosage: DAY 1 AND DAY 2 ;  EPIRUBICIN 600 MG + WATER FOR INJECTION 80 ML
     Route: 041
     Dates: start: 20180913, end: 20180914
  5. PHARMORUBICIN [Suspect]
     Active Substance: EPIRUBICIN
     Dosage: DOSE REINTRODUCED; EPIRUBICIN + WATER FOR INJECTION
     Route: 041
  6. 0.9% SODIUM CHLORIDE INJECTION [Suspect]
     Active Substance: SODIUM CHLORIDE
     Indication: MEDICATION DILUTION
     Dosage: CYCLOPHOSPHAMIDE 900 MG + 0.9% NS 80 ML
     Route: 041
     Dates: start: 20180915, end: 20180915
  7. STERILE WATER FOR INJECTION [Suspect]
     Active Substance: WATER
     Dosage: DOSE REINTRODUCED; EPIRUBICIN + WATER FOR INJECTION
     Route: 041
  8. 0.9% SODIUM CHLORIDE INJECTION [Suspect]
     Active Substance: SODIUM CHLORIDE
     Dosage: DOSE REINTRODUCED, CYCLOPHOSPHAMIDE + 0.9% NS
     Route: 041

REACTIONS (1)
  - Myelosuppression [Recovered/Resolved]

NARRATIVE: CASE EVENT DATE: 20180921
